FAERS Safety Report 19730181 (Version 1)
Quarter: 2021Q3

REPORT INFORMATION
  Report Type: Spontaneous
  Country: NL (occurrence: NL)
  Receive Date: 20210820
  Receipt Date: 20210820
  Transmission Date: 20211014
  Serious: Yes (Other)
  Sender: FDA-Public Use
  Company Number: NL-TEVA-2021-NL-1943369

PATIENT

DRUGS (1)
  1. ESCITALOPRAM [Suspect]
     Active Substance: ESCITALOPRAM OXALATE
     Indication: PRODUCT USED FOR UNKNOWN INDICATION
     Dosage: 20MG, THERAPY END DATE: ASKU
     Route: 065
     Dates: start: 20200630

REACTIONS (12)
  - Confusional state [Unknown]
  - Emotional disorder [Unknown]
  - Hemiplegia [Unknown]
  - Anxiety [Unknown]
  - Pyrexia [Unknown]
  - Vomiting [Unknown]
  - Asthenia [Unknown]
  - Migraine [Unknown]
  - Nausea [Unknown]
  - Vertigo [Unknown]
  - Hyperhidrosis [Unknown]
  - Aphasia [Unknown]

NARRATIVE: CASE EVENT DATE: 20210225
